FAERS Safety Report 23687157 (Version 2)
Quarter: 2024Q2

REPORT INFORMATION
  Report Type: Spontaneous
  Country: NL (occurrence: NL)
  Receive Date: 20240329
  Receipt Date: 20240411
  Transmission Date: 20240716
  Serious: Yes (Hospitalization)
  Sender: FDA-Public Use
  Company Number: NL-SA-SAC20240313000551

PATIENT
  Sex: Female

DRUGS (35)
  1. DUPIXENT [Suspect]
     Active Substance: DUPILUMAB
     Dosage: 200 MG, QOW
     Dates: start: 20240206
  2. XOLAIR [Suspect]
     Active Substance: OMALIZUMAB
     Dosage: UNK
  3. MEPOLIZUMAB [Concomitant]
     Active Substance: MEPOLIZUMAB
     Dosage: UNK
  4. AZITHROMYCIN [Concomitant]
     Active Substance: AZITHROMYCIN
     Dosage: 1 DF, QOD
  5. FOSTER [Concomitant]
     Active Substance: BECLOMETHASONE\FORMOTEROL
     Dosage: 2 DF, TID
  6. BISACODYL [Concomitant]
     Active Substance: BISACODYL
     Dosage: UNK
  7. CLOTRIMAZOLE [Concomitant]
     Active Substance: CLOTRIMAZOLE
     Dosage: INSERT 1 PIECE INTO VAGINA
     Route: 067
  8. COSMETICS [Concomitant]
     Active Substance: COSMETICS
     Dosage: UNK, BID
     Route: 003
  9. CLEMASTINE [Concomitant]
     Active Substance: CLEMASTINE
     Dosage: 1 DF, BID
  10. CODEINE [Concomitant]
     Active Substance: CODEINE
     Dosage: 1 DF
  11. DESLORATADINE [Concomitant]
     Active Substance: DESLORATADINE
     Dosage: 1 DF, BID
  12. EZETIMIBE [Concomitant]
     Active Substance: EZETIMIBE
     Dosage: 1 DF, QD
  13. FLUTICASONE [Concomitant]
     Active Substance: FLUTICASONE
     Dosage: IF NECESSARY. ADMINISTER 2 DOSES IN BOTH NOSTRILS
     Route: 045
  14. FUROSEMIDE [Concomitant]
     Active Substance: FUROSEMIDE
     Dosage: 1 DF, QD
  15. ATROVENT [Concomitant]
     Active Substance: IPRATROPIUM BROMIDE
     Dosage: 2 DF, QID
     Route: 055
  16. LIDOCAINE [Concomitant]
     Active Substance: LIDOCAINE
     Dosage: UNK, QD
  17. LISINOPRIL [Concomitant]
     Active Substance: LISINOPRIL
     Dosage: 10 MG, QD
  18. LIVOCAB [Concomitant]
     Dosage: 1 DROP, BID
     Route: 047
  19. METOCLOPRAMIDE [Concomitant]
     Active Substance: METOCLOPRAMIDE
     Dosage: UNK, TID
  20. MONTELUKAST [Concomitant]
     Active Substance: MONTELUKAST SODIUM
     Dosage: 10 MG, QD
  21. SODIUM CHLORIDE [Concomitant]
     Active Substance: SODIUM CHLORIDE
     Dosage: MIX 1 AMPOULE WITH 0.5ML SALBUTAMOL IN THE NEBULIZER
  22. SODIUM PHOSPHATE [Concomitant]
     Active Substance: SODIUM PHOSPHATE
     Dosage: 1 DF, QD
     Route: 054
  23. OXYCONTIN [Concomitant]
     Active Substance: OXYCODONE HYDROCHLORIDE
     Dosage: 10 MG, TID
  24. OXYCODONE HYDROCHLORIDE [Concomitant]
     Active Substance: OXYCODONE HYDROCHLORIDE
     Dosage: 5 MG, QID
  25. OZEMPIC [Concomitant]
     Active Substance: SEMAGLUTIDE
     Dosage: 0.25 MG, QW
  26. PICOPREP [Concomitant]
     Active Substance: ANHYDROUS CITRIC ACID\MAGNESIUM OXIDE\SODIUM PICOSULFATE
     Dosage: 1 DF, QW
  27. PLEINVUE [Concomitant]
     Dosage: UNK
  28. PREGABALIN [Concomitant]
     Active Substance: PREGABALIN
     Dosage: 1 DF, TID
  29. COMBIVENT [Concomitant]
     Active Substance: ALBUTEROL SULFATE\IPRATROPIUM BROMIDE
     Dosage: 2.5 ML
     Route: 055
  30. SOLIFENACIN [Concomitant]
     Active Substance: SOLIFENACIN
     Dosage: 1 DF, QD
  31. SPIRIVA RESPIMAT [Concomitant]
     Active Substance: TIOTROPIUM BROMIDE
     Dosage: 2 DF, QD
     Route: 055
  32. XYLOCAINE [Concomitant]
     Active Substance: LIDOCAINE HYDROCHLORIDE
     Dosage: UNK, QD
  33. LINACLOTIDE [Concomitant]
     Active Substance: LINACLOTIDE
     Dosage: 1 DF, QD
  34. PREDNISONE [Concomitant]
     Active Substance: PREDNISONE
     Indication: Idiopathic intracranial hypertension
     Dosage: UNK
  35. CLEMASTINE FUMARATE [Concomitant]
     Active Substance: CLEMASTINE FUMARATE
     Indication: Idiopathic intracranial hypertension
     Dosage: UNK

REACTIONS (5)
  - Drug hypersensitivity [Unknown]
  - Dyspnoea [Unknown]
  - Swelling of eyelid [Unknown]
  - Diplopia [Unknown]
  - Swelling face [Unknown]
